FAERS Safety Report 5879219-9 (Version None)
Quarter: 2008Q3

REPORT INFORMATION
  Report Type: 
  Country: None (occurrence: None)
  Receive Date: 20080911
  Receipt Date: 20080911
  Transmission Date: 20090109
  Serious: Yes (Other)
  Sender: FDA-Public Use
  Company Number: None

PATIENT
  Sex: Female
  Weight: 56.6996 kg

DRUGS (2)
  1. SERTRALINE [Suspect]
     Indication: POST-TRAUMATIC STRESS DISORDER
     Dosage: 50MG TWO PO QHS
     Route: 048
     Dates: start: 20080101, end: 20080201
  2. ATIVAN [Concomitant]

REACTIONS (4)
  - CONDITION AGGRAVATED [None]
  - GENERAL PHYSICAL HEALTH DETERIORATION [None]
  - MENTAL DISORDER [None]
  - THERAPEUTIC RESPONSE UNEXPECTED WITH DRUG SUBSTITUTION [None]
